FAERS Safety Report 4752661-5 (Version None)
Quarter: 2005Q3

REPORT INFORMATION
  Report Type: 
  Country: None (occurrence: None)
  Receive Date: 20050824
  Receipt Date: 20050810
  Transmission Date: 20060218
  Serious: Yes (Hospitalization, Other)
  Sender: FDA-Public Use
  Company Number: USA0508105384

PATIENT
  Age: 65 Year
  Sex: 0

DRUGS (2)
  1. CYMBALTA [Suspect]
     Indication: PAIN
     Dosage: 30  MG DAY
  2. DIURETIC [Concomitant]

REACTIONS (1)
  - HYPONATRAEMIA [None]
